FAERS Safety Report 9782972 (Version 1)
Quarter: 2013Q4

REPORT INFORMATION
  Report Type: Spontaneous
  Country: IN (occurrence: IN)
  Receive Date: 20131226
  Receipt Date: 20131226
  Transmission Date: 20140711
  Serious: Yes (Life-Threatening, Other)
  Sender: FDA-Public Use
  Company Number: IN-PFIZER INC-2013364952

PATIENT
  Age: 21 Year
  Sex: Male
  Weight: 52 kg

DRUGS (2)
  1. PREGABALIN [Suspect]
     Indication: BACK PAIN
     Dosage: 75 MG,  O.D. AT BED TIME
  2. DICLOFENAC [Concomitant]
     Indication: BACK PAIN
     Dosage: UNK

REACTIONS (3)
  - Self injurious behaviour [Recovered/Resolved]
  - Drug abuse [Unknown]
  - Drug dependence [Unknown]
